FAERS Safety Report 7736565-1 (Version None)
Quarter: 2011Q3

REPORT INFORMATION
  Report Type: 
  Country: None (occurrence: None)
  Receive Date: 20110902
  Receipt Date: 20110818
  Transmission Date: 20111222
  Serious: Yes (Other)
  Sender: FDA-Public Use
  Company Number: AUR-APL-2011-04705

PATIENT
  Age: 64 Year
  Sex: Female
  Weight: 43.9989 kg

DRUGS (1)
  1. CIPROFLOXACIN [Suspect]
     Indication: SINUSITIS
     Dosage: 2 DOSAGE FORMS (1 DOSAGE FORMS,2 IN 1 D),PER ORAL
     Route: 048
     Dates: start: 20110802, end: 20110807

REACTIONS (3)
  - MUSCULOSKELETAL STIFFNESS [None]
  - ARTHRALGIA [None]
  - TENDONITIS [None]
